FAERS Safety Report 8986970 (Version 1)
Quarter: 2012Q4

REPORT INFORMATION
  Report Type: Spontaneous
  Country: US (occurrence: None)
  Receive Date: 20121217
  Receipt Date: 20121217
  Transmission Date: 20130627
  Serious: Yes (Death)
  Sender: FDA-Public Use
  Company Number: ADR-2012-02233

PATIENT
  Age: 54 Year
  Sex: Female

DRUGS (1)
  1. LIORESAL [Suspect]
     Indication: SPASTICITY

REACTIONS (1)
  - Death [None]
